FAERS Safety Report 4637928-3 (Version None)
Quarter: 2005Q2

REPORT INFORMATION
  Report Type: 
  Country: None (occurrence: None)
  Receive Date: 20050418
  Receipt Date: 20050323
  Transmission Date: 20051028
  Serious: Yes (Hospitalization)
  Sender: FDA-Public Use
  Company Number: JP-ROCHE-400017

PATIENT
  Age: 81 Year
  Sex: Female

DRUGS (6)
  1. TAMIFLU [Suspect]
     Route: 048
     Dates: start: 20050315, end: 20050315
  2. TAMIFLU [Suspect]
     Route: 048
     Dates: start: 20050316, end: 20050316
  3. HUSCODE [Suspect]
     Route: 048
     Dates: start: 20050315, end: 20050317
  4. BROCIN [Suspect]
     Route: 048
     Dates: start: 20050315, end: 20050317
  5. LOXONIN [Concomitant]
     Route: 048
     Dates: start: 20050319, end: 20050321
  6. CYTOTEC [Concomitant]
     Route: 048
     Dates: start: 20050319, end: 20050321

REACTIONS (4)
  - ARTHRALGIA [None]
  - BACK PAIN [None]
  - FALL [None]
  - RASH [None]
